FAERS Safety Report 23213773 (Version 2)
Quarter: 2024Q4

REPORT INFORMATION
  Report Type: Spontaneous
  Country: SA (occurrence: SA)
  Receive Date: 20231121
  Receipt Date: 20241003
  Transmission Date: 20250115
  Serious: Yes (Hospitalization, Other)
  Sender: STRIDES
  Company Number: SA-STRIDES ARCOLAB LIMITED-2023SP017057

PATIENT
  Age: 6 Decade
  Sex: Male

DRUGS (44)
  1. TACROLIMUS [Interacting]
     Active Substance: TACROLIMUS
     Indication: Immunosuppressant drug therapy
     Dosage: UNK (DOSE ADJUSTED BASED ON A GOAL SERUM DRUG LEVEL OF 10-12?NG/ML THE FIRST 6?MONTHS, TITRATED DOWN
     Route: 065
     Dates: start: 2015
  2. TACROLIMUS [Interacting]
     Active Substance: TACROLIMUS
     Indication: Prophylaxis against transplant rejection
  3. TESTOSTERONE [Suspect]
     Active Substance: TESTOSTERONE
     Indication: Hormone replacement therapy
     Dosage: UNK
     Route: 065
  4. TESTOSTERONE [Suspect]
     Active Substance: TESTOSTERONE
     Indication: Blood testosterone decreased
  5. MYCOPHENOLATE MOFETIL [Suspect]
     Active Substance: MYCOPHENOLATE MOFETIL
     Indication: Immunosuppressant drug therapy
     Dosage: 1000 MILLIGRAM, EVERY 12 HRS
     Route: 048
     Dates: start: 2015
  6. MYCOPHENOLATE MOFETIL [Suspect]
     Active Substance: MYCOPHENOLATE MOFETIL
     Indication: Prophylaxis against transplant rejection
     Dosage: 250 MILLIGRAM, BID (TAPERED DOSE)
     Route: 048
     Dates: start: 2015
  7. PREDNISOLONE [Suspect]
     Active Substance: PREDNISOLONE
     Indication: Immunosuppressant drug therapy
     Dosage: UNK (TAPER TO OF)
     Route: 048
  8. PREDNISOLONE [Suspect]
     Active Substance: PREDNISOLONE
     Indication: Prophylaxis against transplant rejection
     Dosage: 50 MILLIGRAM, BID (FOR SIX DOSES)
     Route: 048
     Dates: start: 2015
  9. PREDNISOLONE [Suspect]
     Active Substance: PREDNISOLONE
     Dosage: 5 MILLIGRAM PER DAY
     Route: 048
  10. TENOFOVIR DISOPROXIL FUMARATE [Interacting]
     Active Substance: TENOFOVIR DISOPROXIL FUMARATE
     Indication: HIV infection
     Dosage: UNK
     Route: 065
     Dates: start: 2006, end: 2015
  11. TENOFOVIR DISOPROXIL FUMARATE [Interacting]
     Active Substance: TENOFOVIR DISOPROXIL FUMARATE
     Dosage: 300 MILLIGRAM PER DAY
     Route: 048
  12. LAMIVUDINE [Interacting]
     Active Substance: LAMIVUDINE
     Indication: HIV infection
     Dosage: UNK
     Route: 065
     Dates: start: 2006, end: 2015
  13. LAMIVUDINE [Interacting]
     Active Substance: LAMIVUDINE
     Dosage: 300 MILLIGRAM DAILY
     Route: 048
     Dates: start: 201503
  14. NYSTATIN [Suspect]
     Active Substance: NYSTATIN
     Indication: Infection prophylaxis
     Dosage: 500000 UNITS (AFTER MEALS AND AND  BEFORE BEDTIME)
     Route: 048
  15. NYSTATIN [Suspect]
     Active Substance: NYSTATIN
     Indication: Oral candidiasis
  16. METHYLPREDNISOLONE [Suspect]
     Active Substance: METHYLPREDNISOLONE
     Indication: Immunosuppressant drug therapy
     Dosage: 125 MILLIGRAM, EVERY 8 HOURS
     Route: 042
  17. METHYLPREDNISOLONE [Suspect]
     Active Substance: METHYLPREDNISOLONE
     Indication: Prophylaxis against transplant rejection
  18. FLUCONAZOLE [Interacting]
     Active Substance: FLUCONAZOLE
     Indication: Oral candidiasis
     Dosage: UNK
     Route: 065
  19. RALTEGRAVIR [Concomitant]
     Active Substance: RALTEGRAVIR
     Indication: HIV infection
     Dosage: 400 MILLIGRAM, BID
     Route: 048
     Dates: start: 201503
  20. RILPIVIRINE [Concomitant]
     Active Substance: RILPIVIRINE
     Indication: HIV infection
     Dosage: 25 MILLIGRAM PER DAY
     Route: 048
     Dates: start: 201503
  21. MILRINONE [Concomitant]
     Active Substance: MILRINONE
     Indication: Chronic left ventricular failure
     Dosage: 0.375 MCG/KG/MIN
     Route: 065
  22. DOBUTAMINE [Concomitant]
     Active Substance: DOBUTAMINE HYDROCHLORIDE
     Indication: Chronic left ventricular failure
     Dosage: 1 MCG/KG PER MINUTE
     Route: 065
  23. GANCICLOVIR [Concomitant]
     Active Substance: GANCICLOVIR
     Indication: Antiviral prophylaxis
     Dosage: 2.5 MG/KG, EVERY 12 HRS
     Route: 042
     Dates: start: 2015
  24. VALGANCICLOVIR [Concomitant]
     Active Substance: VALGANCICLOVIR
     Indication: Antiviral prophylaxis
     Dosage: 900 MILLIGRAM PER DAY
     Route: 048
     Dates: start: 2015
  25. SULFAMETHOXAZOLE\TRIMETHOPRIM [Concomitant]
     Active Substance: SULFAMETHOXAZOLE\TRIMETHOPRIM
     Indication: Antifungal prophylaxis
     Dosage: UNK, SINGLE PER DAY
     Route: 048
     Dates: start: 2015
  26. PITAVASTATIN [Concomitant]
     Active Substance: PITAVASTATIN
     Indication: Hyperlipidaemia
     Dosage: 1 MILLIGRAM, THRICE  A WEEK
     Route: 048
     Dates: start: 2015
  27. EVEROLIMUS [Concomitant]
     Active Substance: EVEROLIMUS
     Indication: Immunosuppressant drug therapy
     Dosage: UNK
     Route: 065
  28. EVEROLIMUS [Concomitant]
     Active Substance: EVEROLIMUS
     Indication: Prophylaxis against transplant rejection
  29. SIROLIMUS [Concomitant]
     Active Substance: SIROLIMUS
     Indication: Immunosuppressant drug therapy
     Dosage: UNK
     Route: 065
  30. SIROLIMUS [Concomitant]
     Active Substance: SIROLIMUS
     Indication: Prophylaxis against transplant rejection
  31. EZETIMIBE [Concomitant]
     Active Substance: EZETIMIBE
     Indication: Hyperlipidaemia
     Dosage: UNK
     Route: 065
  32. ASPIRIN [Concomitant]
     Active Substance: ASPIRIN
     Indication: Chronic left ventricular failure
     Dosage: 81 MILLIGRAM, QD
     Route: 065
     Dates: start: 2015
  33. DILTIAZEM [Concomitant]
     Active Substance: DILTIAZEM
     Indication: Hypertension
     Dosage: 360 MILLIGRAM, QD
     Route: 048
     Dates: start: 2015
  34. LISINOPRIL [Concomitant]
     Active Substance: LISINOPRIL
     Indication: Hypertension
     Dosage: 5 MILLIGRAM, QD
     Route: 048
     Dates: start: 2015
  35. LISINOPRIL [Concomitant]
     Active Substance: LISINOPRIL
     Indication: Chronic left ventricular failure
  36. BUPROPION [Concomitant]
     Active Substance: BUPROPION
     Indication: Major depression
     Dosage: 300 MILLIGRAM, QD
     Route: 048
     Dates: start: 2015
  37. SERTRALINE [Concomitant]
     Active Substance: SERTRALINE HYDROCHLORIDE
     Indication: Major depression
     Dosage: 50 MILLIGRAM, QD
     Route: 048
     Dates: start: 2015
  38. FAMOTIDINE [Concomitant]
     Active Substance: FAMOTIDINE
     Indication: Product used for unknown indication
     Dosage: 20 MILLIGRAM, QD
     Route: 048
     Dates: start: 2015
  39. CALCIUM CARBONATE [Concomitant]
     Active Substance: CALCIUM CARBONATE
     Indication: Product used for unknown indication
     Dosage: 500 MILLIGRAM, BID
     Route: 048
     Dates: start: 2015
  40. MAGNESIUM OXIDE [Concomitant]
     Active Substance: MAGNESIUM OXIDE
     Indication: Product used for unknown indication
     Dosage: 800 MILLIGRAM, BID
     Route: 048
  41. FERROUS SULFATE [Concomitant]
     Active Substance: FERROUS SULFATE
     Indication: Product used for unknown indication
     Dosage: 325 MILLIGRAM, QD
     Route: 048
     Dates: start: 2015
  42. BICTEGRAVIR\EMTRICITABINE\TENOFOVIR ALAFENAMIDE [Concomitant]
     Active Substance: BICTEGRAVIR\EMTRICITABINE\TENOFOVIR ALAFENAMIDE
     Indication: HIV infection
     Dosage: UNK
     Route: 065
  43. TOPIRAMATE [Concomitant]
     Active Substance: TOPIRAMATE
     Indication: Neuropathy peripheral
     Dosage: UNK
     Route: 065
  44. PREGABALIN [Concomitant]
     Active Substance: PREGABALIN
     Indication: Neuropathy peripheral
     Dosage: UNK
     Route: 065

REACTIONS (6)
  - Drug interaction [Unknown]
  - Basal cell carcinoma [Unknown]
  - Prostate cancer [Unknown]
  - Oral candidiasis [Not Recovered/Not Resolved]
  - Heart transplant rejection [Unknown]
  - Therapy non-responder [Unknown]
